FAERS Safety Report 4772963-6 (Version None)
Quarter: 2005Q3

REPORT INFORMATION
  Report Type: 
  Country: None (occurrence: None)
  Receive Date: 20050916
  Receipt Date: 20050831
  Transmission Date: 20060218
  Serious: Yes (Hospitalization)
  Sender: FDA-Public Use
  Company Number: ACO_0181_2005

PATIENT
  Sex: Female

DRUGS (1)
  1. ZANAFLEX [Suspect]
     Dosage: 2 MG QDAY PO
     Route: 048
     Dates: start: 20050810

REACTIONS (3)
  - LOWER RESPIRATORY TRACT INFECTION [None]
  - NAUSEA [None]
  - PALPITATIONS [None]
